FAERS Safety Report 25243933 (Version 1)
Quarter: 2025Q2

REPORT INFORMATION
  Report Type: Report from Study
  Country: US (occurrence: US)
  Receive Date: 20250428
  Receipt Date: 20250428
  Transmission Date: 20250716
  Serious: Yes (Hospitalization)
  Sender: ALEXION PHARMACEUTICALS
  Company Number: US-AstraZeneca-CH-00854373A

PATIENT

DRUGS (1)
  1. OSIMERTINIB [Suspect]
     Active Substance: OSIMERTINIB
     Indication: Lung carcinoma cell type unspecified stage 0
     Dosage: 80 MILLIGRAM, QD

REACTIONS (5)
  - Dehydration [Recovering/Resolving]
  - Gastroenteritis viral [Recovering/Resolving]
  - Asthenia [Unknown]
  - Nausea [Unknown]
  - Pain [Unknown]
